FAERS Safety Report 9319450 (Version 2)
Quarter: 2013Q3

REPORT INFORMATION
  Report Type: Spontaneous
  Country: ZA (occurrence: ZA)
  Receive Date: 20130530
  Receipt Date: 20130703
  Transmission Date: 20140515
  Serious: Yes (Hospitalization)
  Sender: FDA-Public Use
  Company Number: ZA-ABBOTT-13P-143-1096036-00

PATIENT
  Age: 69 Year
  Sex: Male

DRUGS (3)
  1. HUMIRA [Suspect]
     Indication: CROHN^S DISEASE
     Dosage: WK0=160MG?WK2=80MG?WK4=40MG EOW
     Route: 058
     Dates: start: 20130128
  2. CODEINE PHOSPHATE [Concomitant]
     Indication: CROHN^S DISEASE
     Route: 048
  3. CORALAN [Concomitant]
     Indication: CROHN^S DISEASE

REACTIONS (2)
  - Electrolyte imbalance [Recovered/Resolved]
  - Infected fistula [Unknown]
